FAERS Safety Report 12998205 (Version 14)
Quarter: 2019Q3

REPORT INFORMATION
  Report Type: Spontaneous
  Country: US (occurrence: US)
  Receive Date: 20161205
  Receipt Date: 20190927
  Transmission Date: 20191004
  Serious: Yes (Other)
  Sender: FDA-Public Use
  Company Number: US-PFIZER INC-2016561392

PATIENT
  Age: 70 Year
  Sex: Female
  Weight: 64 kg

DRUGS (34)
  1. XELJANZ XR [Suspect]
     Active Substance: TOFACITINIB CITRATE
     Indication: RHEUMATOID ARTHRITIS
     Dosage: 11 MG, DAILY
     Route: 048
     Dates: start: 20160726, end: 20161106
  2. XELJANZ XR [Suspect]
     Active Substance: TOFACITINIB CITRATE
     Dosage: 11 MG, ONCE DAILY
     Route: 048
  3. HUMIRA [Suspect]
     Active Substance: ADALIMUMAB
     Indication: RHEUMATOID ARTHRITIS
     Dosage: UNK
     Route: 058
     Dates: start: 2016
  4. METHOTREXATE. [Concomitant]
     Active Substance: METHOTREXATE
     Dosage: 2.5 MG, UNK
     Route: 048
     Dates: start: 2015
  5. VITAMIN B12 [Concomitant]
     Active Substance: CYANOCOBALAMIN
     Indication: IMMUNE SYSTEM DISORDER
     Dosage: 1000 UG, 1X/DAY (SHE STARTED TAKING A COUPLE OF YEARS AGO)
     Route: 060
  6. TURMERIC CURCUMIN [Concomitant]
     Active Substance: HERBALS\TURMERIC
     Indication: INFLAMMATION
     Dosage: 500 MG, 1X/DAY
     Route: 048
     Dates: start: 2015
  7. CETIRIZINE [Concomitant]
     Active Substance: CETIRIZINE HYDROCHLORIDE
     Indication: HYPERSENSITIVITY
     Dosage: UNK
     Route: 048
  8. XELJANZ XR [Suspect]
     Active Substance: TOFACITINIB CITRATE
     Dosage: 11 MG, DAILY
     Route: 048
     Dates: end: 2019
  9. ZYRTEC-D [Concomitant]
     Active Substance: CETIRIZINE HYDROCHLORIDE\PSEUDOEPHEDRINE HYDROCHLORIDE
     Indication: HYPERSENSITIVITY
  10. PREDNISONE. [Concomitant]
     Active Substance: PREDNISONE
     Indication: INFLAMMATION
     Dosage: 5 MG, 1X/DAY
     Route: 048
     Dates: start: 2016
  11. XELJANZ XR [Suspect]
     Active Substance: TOFACITINIB CITRATE
     Dosage: 11 MG, 1X/DAY
     Route: 048
     Dates: start: 2016, end: 201801
  12. OMEPRAZOLE. [Concomitant]
     Active Substance: OMEPRAZOLE
     Indication: ABDOMINAL DISCOMFORT
     Dosage: 40 MG, 1X/DAY (SHE HAS BEEN TAKING FOR ABOUT 2.5 OR MORE YEARS)
     Route: 048
  13. OMEPRAZOLE. [Concomitant]
     Active Substance: OMEPRAZOLE
     Indication: ABDOMINAL DISCOMFORT
     Dosage: 40 MG, UNK
     Route: 048
     Dates: start: 2016
  14. FOLIC ACID. [Concomitant]
     Active Substance: FOLIC ACID
     Indication: VITAMIN SUPPLEMENTATION
     Dosage: 1 DF, DAILY
     Route: 048
     Dates: start: 2016
  15. ZYRTEC-D [Concomitant]
     Active Substance: CETIRIZINE HYDROCHLORIDE\PSEUDOEPHEDRINE HYDROCHLORIDE
     Indication: PARANASAL SINUS DISCOMFORT
     Dosage: 1 DF, 1X/DAY (CERTRAZINE-5 MG/ PSEUDOEPHEDRINE-120 MG) (SHE TOOK ONE THIS MORNING)
  16. ADVAIR HFA [Concomitant]
     Active Substance: FLUTICASONE PROPIONATE\SALMETEROL XINAFOATE
     Indication: CHRONIC OBSTRUCTIVE PULMONARY DISEASE
     Dosage: 2 DF, DAILY (FLUTICASONE PROPIONATE: 250, SALMETEROL XINAFOATE: 50 MCG)
     Route: 055
  17. FLONASE [Concomitant]
     Active Substance: FLUTICASONE PROPIONATE
     Indication: HYPERSENSITIVITY
     Dosage: 50 UG, 2X/DAY (ONE SPRAY IN EACH NOSTRIL TWICE A DAY; BEEN TAKING OFF AND ON THROUGH OUT THE YEARS)
     Route: 045
  18. PROAIR HFA [Concomitant]
     Active Substance: ALBUTEROL SULFATE
     Indication: CHRONIC OBSTRUCTIVE PULMONARY DISEASE
     Dosage: 90 UG, AS NEEDED, TWO PUFFS EVERY 4 TO 6 HOURS AS NEEDED
     Route: 055
  19. METHOTREXATE. [Concomitant]
     Active Substance: METHOTREXATE
     Indication: RHEUMATOID ARTHRITIS
     Dosage: 15 MG, WEEKLY (6 TABLET EVERY SATURDAY)
     Route: 048
     Dates: start: 2013
  20. ADVAIR HFA [Concomitant]
     Active Substance: FLUTICASONE PROPIONATE\SALMETEROL XINAFOATE
     Indication: BRONCHITIS
     Dosage: UNK UNK, 2X/DAY (250/50MCG ONE PUFF TWICE A DAY; IT IS AN INHALER. SHE HAS BEEN TAKING FOR A COUPLE)
     Route: 055
  21. OMEGA 3 6 9 [Concomitant]
     Active Substance: FISH OIL
     Indication: NUTRITIONAL SUPPLEMENTATION
     Dosage: 1 DF, 1X/DAY (ONE SOFT GEL ONCE A DAY BY MOUTH)
     Route: 048
  22. OMEGA 3 6 9 [Concomitant]
     Active Substance: FISH OIL
     Indication: ROUTINE HEALTH MAINTENANCE
     Dosage: 1600 MG, 1X/DAY
     Route: 048
  23. CALTRATE 600+D [Concomitant]
     Indication: BONE DISORDER
     Dosage: 600 MG, 1X/DAY (SHE STARTED TAKING 4 YEARS AGO)
     Route: 048
     Dates: start: 2014
  24. VITAMIN D3 [Concomitant]
     Active Substance: CHOLECALCIFEROL
     Indication: BONE DISORDER
  25. BIOTIN [Concomitant]
     Active Substance: BIOTIN
     Indication: HAIR DISORDER
     Dosage: 5000 UG, 1X/DAY
     Route: 060
  26. BIOTIN [Concomitant]
     Active Substance: BIOTIN
     Indication: SKIN DISORDER
  27. BIOTIN [Concomitant]
     Active Substance: BIOTIN
     Indication: NAIL DISORDER
     Dosage: 5000 UG, DAILY
     Route: 060
  28. OMEPRAZOLE. [Concomitant]
     Active Substance: OMEPRAZOLE
     Indication: RHEUMATOID ARTHRITIS
  29. FOLIC ACID. [Concomitant]
     Active Substance: FOLIC ACID
     Indication: IMMUNE SYSTEM DISORDER
     Dosage: 1 MG, 1X/DAY (SHE HAS BEEN TAKING FOR A WHILE)
     Route: 048
  30. VITAMIN D3 [Concomitant]
     Active Substance: CHOLECALCIFEROL
     Indication: IMMUNE SYSTEM DISORDER
     Dosage: 1000 IU, 1X/DAY (SHE STARTED TAKING A COUPLE OF YEARS AGO) (1 IN 1 D)
     Route: 048
     Dates: start: 2015
  31. VITAMIN B12 [Concomitant]
     Active Substance: CYANOCOBALAMIN
     Indication: ROUTINE HEALTH MAINTENANCE
     Dosage: 3000 UG, DAILY (1 IN 1 D)
     Route: 060
     Dates: start: 2015
  32. CETIRIZINE HYDROCHLORIDE AND PSEUDOEPHEDRINE [Concomitant]
     Active Substance: CETIRIZINE HYDROCHLORIDE\PSEUDOEPHEDRINE HYDROCHLORIDE
     Indication: SINUS CONGESTION
  33. PROAIR HFA [Concomitant]
     Active Substance: ALBUTEROL SULFATE
     Indication: BRONCHITIS
  34. CETIRIZINE HYDROCHLORIDE AND PSEUDOEPHEDRINE [Concomitant]
     Active Substance: CETIRIZINE HYDROCHLORIDE\PSEUDOEPHEDRINE HYDROCHLORIDE
     Indication: SEASONAL ALLERGY
     Dosage: 1 DF, AS NEEDED, (ONE TABLET ONCE A DAY BY MOUTH, SHE SOMETIMES TAKES IT AS NEEDED)
     Route: 048

REACTIONS (18)
  - Urinary tract infection [Recovered/Resolved]
  - Full blood count decreased [Unknown]
  - Cytopenia [Recovering/Resolving]
  - Pneumonia [Unknown]
  - Therapeutic product effect incomplete [Recovering/Resolving]
  - Inflammation [Unknown]
  - Pyrexia [Unknown]
  - Respiratory tract congestion [Unknown]
  - Upper respiratory tract infection [Recovered/Resolved]
  - Hair texture abnormal [Unknown]
  - Upper respiratory tract congestion [Unknown]
  - Leukopenia [Recovered/Resolved]
  - Platelet count increased [Unknown]
  - Onychoclasis [Recovered/Resolved]
  - Blood cholesterol increased [Unknown]
  - Fatigue [Unknown]
  - Pharyngitis [Unknown]
  - Gastrointestinal disorder [Unknown]

NARRATIVE: CASE EVENT DATE: 20161105
